FAERS Safety Report 5338809-2 (Version None)
Quarter: 2007Q2

REPORT INFORMATION
  Report Type: 
  Country: None (occurrence: None)
  Receive Date: 20070322
  Receipt Date: 20060609
  Transmission Date: 20071010
  Serious: Yes (Other)
  Sender: FDA-Public Use
  Company Number: 200611716BCC

PATIENT
  Age: 79 Year
  Sex: Female
  Weight: 81.6475 kg

DRUGS (3)
  1. ALEVE (CAPLET) [Suspect]
     Indication: ARTHRITIS
     Dosage: ORAL
     Route: 048
     Dates: start: 20060419
  2. DAVIN [Concomitant]
  3. ASPIRIN [Concomitant]

REACTIONS (2)
  - ARTHRALGIA [None]
  - BLOOD PRESSURE INCREASED [None]
